FAERS Safety Report 21519248 (Version 7)
Quarter: 2024Q2

REPORT INFORMATION
  Report Type: Report from Study
  Country: CA (occurrence: CA)
  Receive Date: 20221028
  Receipt Date: 20240603
  Transmission Date: 20240715
  Serious: Yes (Other)
  Sender: FDA-Public Use
  Company Number: CA-TAKEDA-2022TUS078753

PATIENT
  Age: 30 Year
  Sex: Female

DRUGS (5)
  1. VEDOLIZUMAB [Suspect]
     Active Substance: VEDOLIZUMAB
     Indication: Colitis ulcerative
     Dosage: 300 MILLIGRAM
     Route: 042
     Dates: start: 20220718
  2. VEDOLIZUMAB [Suspect]
     Active Substance: VEDOLIZUMAB
     Indication: Colitis ulcerative
     Dosage: 108 MILLIGRAM, Q2WEEKS
     Route: 058
     Dates: start: 20221102
  3. POTASSIUM CITRATE [Suspect]
     Active Substance: POTASSIUM CITRATE
     Indication: Product used for unknown indication
     Dosage: UNK
     Route: 065
  4. Salofalk [Concomitant]
     Dosage: UNK
     Dates: start: 20200101
  5. MESALAMINE [Concomitant]
     Active Substance: MESALAMINE
     Dosage: 4.8 MILLIGRAM, QD
     Dates: start: 20200101

REACTIONS (14)
  - Colitis ulcerative [Unknown]
  - Haematochezia [Unknown]
  - Nephrolithiasis [Unknown]
  - COVID-19 [Unknown]
  - Diarrhoea [Unknown]
  - Frequent bowel movements [Unknown]
  - Chronic sinusitis [Unknown]
  - Faeces hard [Unknown]
  - Faeces soft [Unknown]
  - Large intestine polyp [Unknown]
  - Product dose omission issue [Unknown]
  - Abdominal pain [Unknown]
  - Anal fissure [Unknown]
  - Nasopharyngitis [Unknown]

NARRATIVE: CASE EVENT DATE: 20221022
